FAERS Safety Report 5982265-8 (Version None)
Quarter: 2008Q4

REPORT INFORMATION
  Report Type: 
  Country: None (occurrence: None)
  Receive Date: 20081208
  Receipt Date: 20081126
  Transmission Date: 20090506
  Serious: Yes (Hospitalization)
  Sender: FDA-Public Use
  Company Number: B0547934A

PATIENT
  Age: 41 Year
  Sex: Female

DRUGS (2)
  1. ARIXTRA [Suspect]
     Indication: DRUG USE FOR UNKNOWN INDICATION
     Dosage: 7.5MG PER DAY
     Route: 058
     Dates: start: 20081014, end: 20081019
  2. KARDEGIC [Suspect]
     Indication: NEOPLASM
     Dosage: 75MG PER DAY
     Route: 048
     Dates: start: 20081001, end: 20081020

REACTIONS (3)
  - BACK PAIN [None]
  - MUSCLE HAEMORRHAGE [None]
  - MYOSITIS [None]
